FAERS Safety Report 18657759 (Version 4)
Quarter: 2021Q2

REPORT INFORMATION
  Report Type: Report from Study
  Country: None (occurrence: ES)
  Receive Date: 20201224
  Receipt Date: 20210422
  Transmission Date: 20210717
  Serious: Yes (Other)
  Sender: FDA-Public Use
  Company Number: ES-ABBVIE-20K-144-3687573-00

PATIENT
  Age: 77 Year
  Sex: Male

DRUGS (2)
  1. DUODOPA [Suspect]
     Active Substance: CARBIDOPA\LEVODOPA
     Indication: PARKINSON^S DISEASE
     Route: 050
     Dates: start: 20141106
  2. DUODOPA [Suspect]
     Active Substance: CARBIDOPA\LEVODOPA

REACTIONS (12)
  - Device connection issue [Not Recovered/Not Resolved]
  - Bedridden [Unknown]
  - Haemorrhage [Recovered/Resolved]
  - Device deployment issue [Not Recovered/Not Resolved]
  - Device kink [Recovered/Resolved]
  - Stoma site pain [Recovered/Resolved]
  - Embedded device [Not Recovered/Not Resolved]
  - Stoma site infection [Recovering/Resolving]
  - Abdominal pain [Not Recovered/Not Resolved]
  - Abdominal discomfort [Unknown]
  - Stoma site erythema [Recovered/Resolved]
  - Device difficult to use [Unknown]

NARRATIVE: CASE EVENT DATE: 202011
